FAERS Safety Report 22538133 (Version 4)
Quarter: 2024Q2

REPORT INFORMATION
  Report Type: Spontaneous
  Country: CA (occurrence: CA)
  Receive Date: 20230608
  Receipt Date: 20240602
  Transmission Date: 20240716
  Serious: Yes (Hospitalization, Other)
  Sender: FDA-Public Use
  Company Number: CA-ALXN-A202307457

PATIENT
  Sex: Female

DRUGS (8)
  1. SOLIRIS [Suspect]
     Active Substance: ECULIZUMAB
     Indication: Paroxysmal nocturnal haemoglobinuria
     Dosage: 600 MG, QW
     Route: 042
     Dates: start: 20150114, end: 20150204
  2. SOLIRIS [Suspect]
     Active Substance: ECULIZUMAB
     Dosage: 900 MILLIGRAM, Q2W
     Route: 042
     Dates: start: 20150210
  3. EXJADE [Suspect]
     Active Substance: DEFERASIROX
     Indication: Iron overload
     Dosage: UNK
     Route: 065
  4. FERROUS FUMARATE [Concomitant]
     Active Substance: FERROUS FUMARATE
     Indication: Product used for unknown indication
     Dosage: UNK
     Route: 065
  5. FOLIC ACID [Concomitant]
     Active Substance: FOLIC ACID
     Indication: Product used for unknown indication
     Dosage: UNK
     Route: 065
  6. LASIX [Concomitant]
     Active Substance: FUROSEMIDE
     Indication: Product used for unknown indication
     Dosage: 20 MG, UNK
     Route: 065
  7. PIPERACILLIN SODIUM [Concomitant]
     Active Substance: PIPERACILLIN SODIUM
     Indication: Product used for unknown indication
     Dosage: UNK
     Route: 042
  8. Piptazo [Concomitant]
     Indication: Product used for unknown indication
     Dosage: UNK
     Route: 065

REACTIONS (28)
  - Breakthrough haemolysis [Not Recovered/Not Resolved]
  - Extravascular haemolysis [Not Recovered/Not Resolved]
  - Neutropenia [Not Recovered/Not Resolved]
  - Disturbance in attention [Not Recovered/Not Resolved]
  - Fall [Not Recovered/Not Resolved]
  - Hepatic steatosis [Not Recovered/Not Resolved]
  - Night sweats [Not Recovered/Not Resolved]
  - Presyncope [Not Recovered/Not Resolved]
  - Productive cough [Not Recovered/Not Resolved]
  - Ocular icterus [Not Recovered/Not Resolved]
  - Hypoaesthesia [Not Recovered/Not Resolved]
  - Intermenstrual bleeding [Not Recovered/Not Resolved]
  - Weight increased [Not Recovered/Not Resolved]
  - Haemolysis [Not Recovered/Not Resolved]
  - Pneumonia [Not Recovered/Not Resolved]
  - Diarrhoea [Not Recovered/Not Resolved]
  - Dizziness [Not Recovered/Not Resolved]
  - Anaemia [Not Recovered/Not Resolved]
  - Abdominal pain [Not Recovered/Not Resolved]
  - Headache [Not Recovered/Not Resolved]
  - Hot flush [Not Recovered/Not Resolved]
  - Hyperhidrosis [Not Recovered/Not Resolved]
  - Hypotension [Not Recovered/Not Resolved]
  - Nausea [Not Recovered/Not Resolved]
  - Palpitations [Not Recovered/Not Resolved]
  - Paraesthesia [Not Recovered/Not Resolved]
  - Pyrexia [Not Recovered/Not Resolved]
  - Upper respiratory tract infection [Not Recovered/Not Resolved]
